FAERS Safety Report 7191505-1 (Version None)
Quarter: 2010Q4

REPORT INFORMATION
  Report Type: 
  Country: None (occurrence: None)
  Receive Date: 20101223
  Receipt Date: 20101208
  Transmission Date: 20110411
  Serious: Yes (Hospitalization, Other)
  Sender: FDA-Public Use
  Company Number: US-ROCHE-727211

PATIENT
  Sex: Male

DRUGS (1)
  1. ACCUTANE [Suspect]
     Indication: ACNE
     Route: 065
     Dates: start: 19820601, end: 19840101

REACTIONS (7)
  - COLONIC FISTULA [None]
  - CROHN'S DISEASE [None]
  - GASTROINTESTINAL INJURY [None]
  - ILEAL FISTULA [None]
  - ILEAL PERFORATION [None]
  - NEPHROLITHIASIS [None]
  - PELVIC ABSCESS [None]
